FAERS Safety Report 22032529 (Version 1)
Quarter: 2023Q1

REPORT INFORMATION
  Report Type: Spontaneous
  Country: US (occurrence: None)
  Receive Date: 20230224
  Receipt Date: 20230224
  Transmission Date: 20230418
  Serious: Yes (Hospitalization)
  Sender: FDA-Public Use
  Company Number: 2023A041909

PATIENT
  Age: 74 Year
  Sex: Male
  Weight: 93 kg

DRUGS (4)
  1. BRILINTA [Suspect]
     Active Substance: TICAGRELOR
     Indication: Cardiac failure
     Route: 048
     Dates: start: 20190104
  2. BRILINTA [Suspect]
     Active Substance: TICAGRELOR
     Indication: Cardiac failure
     Route: 048
  3. BRILINTA [Suspect]
     Active Substance: TICAGRELOR
     Indication: Cardiac failure
     Route: 048
  4. ASPIRIN [Suspect]
     Active Substance: ASPIRIN
     Indication: Cardiac failure
     Route: 048
     Dates: start: 20190104

REACTIONS (6)
  - Coronary artery occlusion [Recovering/Resolving]
  - Contusion [Recovering/Resolving]
  - Blood urine present [Recovered/Resolved with Sequelae]
  - Myalgia [Recovered/Resolved with Sequelae]
  - Bone pain [Recovered/Resolved with Sequelae]
  - Arthritis [Recovered/Resolved with Sequelae]

NARRATIVE: CASE EVENT DATE: 20230214
